FAERS Safety Report 9337226 (Version 1)
Quarter: 2013Q2

REPORT INFORMATION
  Report Type: Spontaneous
  Country: US (occurrence: US)
  Receive Date: 20130607
  Receipt Date: 20130607
  Transmission Date: 20140414
  Serious: Yes (Hospitalization, Other)
  Sender: FDA-Public Use
  Company Number: US-ELI_LILLY_AND_COMPANY-US201305008900

PATIENT
  Sex: Female

DRUGS (4)
  1. CYMBALTA [Suspect]
     Dosage: UNK
  2. LYRICA [Concomitant]
     Dosage: UNK
  3. ESCITALOPRAM [Concomitant]
  4. GABAPENTIN [Concomitant]

REACTIONS (17)
  - Complex regional pain syndrome [Recovered/Resolved]
  - Concussion [Unknown]
  - Upper limb fracture [Unknown]
  - Weight decreased [Unknown]
  - Dyskinesia [Unknown]
  - Malaise [Unknown]
  - Thinking abnormal [Unknown]
  - Abnormal behaviour [Unknown]
  - Swelling [Unknown]
  - Eating disorder [Unknown]
  - Dyspnoea [Unknown]
  - Irritability [Unknown]
  - Vomiting [Unknown]
  - Diarrhoea [Unknown]
  - Periorbital contusion [Unknown]
  - Memory impairment [Unknown]
  - Contusion [Unknown]
